FAERS Safety Report 10039387 (Version 2)
Quarter: 2015Q2

REPORT INFORMATION
  Report Type: Spontaneous
  Country: AU (occurrence: AU)
  Receive Date: 20140326
  Receipt Date: 20150516
  Transmission Date: 20150821
  Serious: Yes (Hospitalization, Other)
  Sender: FDA-Public Use
  Company Number: PHHY2014AU034348

PATIENT
  Age: 21 Year
  Sex: Female
  Weight: 57 kg

DRUGS (7)
  1. GILENYA [Suspect]
     Active Substance: FINGOLIMOD HYDROCHLORIDE
     Indication: PRODUCT USED FOR UNKNOWN INDICATION
     Dosage: 0.5 MG, UNK
     Route: 048
     Dates: start: 201112, end: 201502
  2. IBUPROFEN. [Concomitant]
     Active Substance: IBUPROFEN
     Indication: PRODUCT USED FOR UNKNOWN INDICATION
     Dosage: 1 DF, BID (400 MG)
     Route: 065
  3. VALIUM [Concomitant]
     Active Substance: DIAZEPAM
     Indication: SLEEP DISORDER
     Route: 065
  4. SERTRALINE [Concomitant]
     Active Substance: SERTRALINE HYDROCHLORIDE
     Indication: PRODUCT USED FOR UNKNOWN INDICATION
     Route: 065
     Dates: start: 20131031
  5. PARACETAMOL [Concomitant]
     Active Substance: ACETAMINOPHEN
     Indication: PRODUCT USED FOR UNKNOWN INDICATION
     Dosage: 1 G, UNK
     Route: 065
  6. ESTELLE                            /00022701/ [Concomitant]
     Indication: PRODUCT USED FOR UNKNOWN INDICATION
     Route: 065
     Dates: start: 201201
  7. NAPROSYN [Concomitant]
     Active Substance: NAPROXEN
     Indication: PRODUCT USED FOR UNKNOWN INDICATION
     Route: 065

REACTIONS (28)
  - Yellow skin [Unknown]
  - Chromaturia [Unknown]
  - Headache [Unknown]
  - Urinary tract infection [Unknown]
  - Abdominal pain upper [Unknown]
  - Eye pain [Unknown]
  - Smooth muscle antibody positive [Unknown]
  - Protein albumin ratio decreased [Unknown]
  - Ocular icterus [Unknown]
  - Blood albumin decreased [Unknown]
  - Pruritus [Recovered/Resolved]
  - Hepatitis acute [Unknown]
  - Nausea [Recovering/Resolving]
  - Drug-induced liver injury [Recovered/Resolved]
  - Optic neuritis [Unknown]
  - Pain [Unknown]
  - Decreased appetite [Unknown]
  - Drug-induced liver injury [Recovered/Resolved]
  - Jaundice [Not Recovered/Not Resolved]
  - Influenza [Unknown]
  - Central nervous system lesion [Unknown]
  - Lethargy [Unknown]
  - Anxiety [Unknown]
  - Liver function test abnormal [Recovered/Resolved]
  - Hepatic necrosis [Unknown]
  - Hepatocellular injury [Unknown]
  - Fatigue [Unknown]
  - Vision blurred [Recovered/Resolved]

NARRATIVE: CASE EVENT DATE: 201312
